FAERS Safety Report 23742433 (Version 2)
Quarter: 2024Q2

REPORT INFORMATION
  Report Type: Spontaneous
  Country: US (occurrence: US)
  Receive Date: 20240415
  Receipt Date: 20240417
  Transmission Date: 20240716
  Serious: No
  Sender: FDA-Public Use
  Company Number: US-CYCLE PHARMACEUTICALS LTD-2024-CYC-000040

PATIENT

DRUGS (1)
  1. TASCENSO ODT [Suspect]
     Active Substance: FINGOLIMOD LAURYL SULFATE
     Indication: Multiple sclerosis
     Dosage: 0.5 MG, QD
     Route: 048
     Dates: start: 20240224

REACTIONS (15)
  - Vomiting [Unknown]
  - Fatigue [Recovering/Resolving]
  - Wrong dose [Unknown]
  - Fall [Unknown]
  - Pain [Recovered/Resolved]
  - Contusion [Unknown]
  - Bone pain [Unknown]
  - Parosmia [Unknown]
  - Eye pain [Unknown]
  - Headache [Unknown]
  - Pain in extremity [Unknown]
  - Back pain [Recovered/Resolved]
  - Arthralgia [Unknown]
  - Nausea [Unknown]
  - Nausea [Unknown]

NARRATIVE: CASE EVENT DATE: 20240331
